FAERS Safety Report 21188487 (Version 1)
Quarter: 2022Q3

REPORT INFORMATION
  Report Type: Spontaneous
  Country: US (occurrence: US)
  Receive Date: 20220809
  Receipt Date: 20220809
  Transmission Date: 20221027
  Serious: Yes (Other)
  Sender: FDA-Public Use
  Company Number: US-IGSA-BIG0014960

PATIENT
  Age: 43 Year
  Sex: Female
  Weight: 70.29 kg

DRUGS (2)
  1. GAMUNEX-C [Suspect]
     Active Substance: HUMAN IMMUNOGLOBULIN G
     Indication: Myasthenia gravis
     Dosage: 5 GRAM, Q.6WK.
     Route: 042
     Dates: start: 20210519, end: 20210520
  2. GAMUNEX-C [Suspect]
     Active Substance: HUMAN IMMUNOGLOBULIN G
     Dosage: 20 GRAM, Q.6WK.
     Route: 042
     Dates: start: 20210519, end: 20210521

REACTIONS (6)
  - Meningitis aseptic [Recovering/Resolving]
  - Headache [Recovering/Resolving]
  - Body temperature increased [Recovering/Resolving]
  - Fatigue [Not Recovered/Not Resolved]
  - Nausea [Recovering/Resolving]
  - Flank pain [Recovering/Resolving]

NARRATIVE: CASE EVENT DATE: 20210521
